FAERS Safety Report 22170372 (Version 1)
Quarter: 2023Q2

REPORT INFORMATION
  Report Type: Spontaneous
  Country: US (occurrence: US)
  Receive Date: 20230404
  Receipt Date: 20230404
  Transmission Date: 20230722
  Serious: No
  Sender: FDA-Public Use
  Company Number: US-SA-SAC20230331000842

PATIENT
  Age: 39 Year
  Sex: Female

DRUGS (5)
  1. DUPIXENT [Suspect]
     Active Substance: DUPILUMAB
     Indication: Eosinophilic oesophagitis
     Dosage: 300 MG, QW
     Route: 058
     Dates: start: 20230308
  2. GABAPENTIN [Concomitant]
     Active Substance: GABAPENTIN
     Dosage: UNK
  3. HYDROCODONE BITARTRATE AND ACETAMINOPHEN [Concomitant]
     Active Substance: ACETAMINOPHEN\HYDROCODONE BITARTRATE
     Dosage: UNK
  4. IRON [Concomitant]
     Active Substance: IRON
     Dosage: UNK
  5. RENFLEXIS [Concomitant]
     Active Substance: INFLIXIMAB-ABDA
     Dosage: UNK

REACTIONS (1)
  - Migraine [Not Recovered/Not Resolved]

NARRATIVE: CASE EVENT DATE: 20230301
